FAERS Safety Report 12807433 (Version 1)
Quarter: 2016Q4

REPORT INFORMATION
  Report Type: Spontaneous
  Country: US (occurrence: US)
  Receive Date: 20161004
  Receipt Date: 20161004
  Transmission Date: 20170207
  Serious: No
  Sender: FDA-Public Use
  Company Number: US-TAKEDA-2016MPI008515

PATIENT
  Age: 68 Year
  Sex: Male

DRUGS (2)
  1. NINLARO [Suspect]
     Active Substance: IXAZOMIB
     Indication: PLASMA CELL MYELOMA
     Dosage: 4 MG, 1/WEEK
     Route: 048
     Dates: start: 20160708, end: 201609
  2. DARZALEX [Concomitant]
     Active Substance: DARATUMUMAB
     Dosage: UNK
     Route: 065

REACTIONS (1)
  - Blood count abnormal [Unknown]

NARRATIVE: CASE EVENT DATE: 201609
